FAERS Safety Report 17782409 (Version 1)
Quarter: 2020Q2

REPORT INFORMATION
  Report Type: Spontaneous
  Country: DE (occurrence: DE)
  Receive Date: 20200514
  Receipt Date: 20200514
  Transmission Date: 20200714
  Serious: Yes (Hospitalization)
  Sender: FDA-Public Use
  Company Number: DE-ACCORD-181509

PATIENT
  Age: 71 Year
  Sex: Female

DRUGS (10)
  1. OCUVITE [Concomitant]
     Active Substance: VITAMINS
     Dosage: NK MG, 1-0-0-0
  2. TRIMBOW [Concomitant]
     Active Substance: BECLOMETHASONE DIPROPIONATE\FORMOTEROL FUMARATE\GLYCOPYRROLATE
     Dosage: 87MIKROGRAMM/5MIKROGRAMM/9MIKROGRAMM, 87/5/9 MICROG, 1-0-1-0
  3. LEVOTHYROXINE. [Concomitant]
     Active Substance: LEVOTHYROXINE
     Dosage: 150 MICROG, 1-0-0-0
  4. CARBOPLATIN. [Suspect]
     Active Substance: CARBOPLATIN
     Indication: PRODUCT USED FOR UNKNOWN INDICATION
     Dosage: NK MG, ACCORDING TO THE SCHEME
  5. URSOFALK [Concomitant]
     Active Substance: URSODIOL
     Dosage: STRENGTH: 250 MG, 2-2-2-2
  6. IPRAMOL [Concomitant]
     Active Substance: ALBUTEROL SULFATE\IPRATROPIUM BROMIDE
     Dosage: NK MG, 4X
  7. CALCIUM CARBONATE. [Concomitant]
     Active Substance: CALCIUM CARBONATE
     Dosage: 500 MG, 0-1-0-0
  8. PREDNISOLONE. [Concomitant]
     Active Substance: PREDNISOLONE
     Dosage: 5 MG, 1-0-0-0
  9. PANTOPRAZOLE [Concomitant]
     Active Substance: PANTOPRAZOLE
     Dosage: 40 MG, 0-0-1-0
  10. PEMETREXED. [Suspect]
     Active Substance: PEMETREXED
     Indication: PRODUCT USED FOR UNKNOWN INDICATION
     Dosage: NK MG, ACCORDING TO THE SCHEME

REACTIONS (2)
  - General physical health deterioration [Unknown]
  - Dyspnoea [Unknown]
